FAERS Safety Report 15562337 (Version 1)
Quarter: 2018Q4

REPORT INFORMATION
  Report Type: Spontaneous
  Country: JP (occurrence: JP)
  Receive Date: 20181029
  Receipt Date: 20181029
  Transmission Date: 20190205
  Serious: Yes (Other)
  Sender: FDA-Public Use
  Company Number: JP-JNJFOC-20181024912

PATIENT
  Sex: Female

DRUGS (9)
  1. EQUA [Concomitant]
     Active Substance: VILDAGLIPTIN
     Indication: TYPE 2 DIABETES MELLITUS
     Dosage: STARTED BEFORE ADMINISTRATION OF CANAGLIFLOZIN
     Route: 048
  2. SIGMART [Concomitant]
     Active Substance: NICORANDIL
     Dosage: STARTED BEFORE ADMINISTRATION OF CANAGLIFLOZIN
     Route: 048
  3. DIOVAN [Concomitant]
     Active Substance: VALSARTAN
     Dosage: STARTED BEFORE ADMINISTRATION OF CANAGLIFLOZIN
     Route: 048
  4. DILTIAZEM HYDROCHLORIDE. [Concomitant]
     Active Substance: DILTIAZEM HYDROCHLORIDE
     Dosage: STARTED BEFORE ADMINISTRATION OF CANAGLIFLOZIN
     Route: 048
  5. METGLUCO [Concomitant]
     Active Substance: METFORMIN HYDROCHLORIDE
     Indication: TYPE 2 DIABETES MELLITUS
     Dosage: STARTED BEFORE ADMINISTRATION OF CANAGLIFLOZIN
     Route: 048
  6. CANAGLU [Suspect]
     Active Substance: CANAGLIFLOZIN
     Indication: TYPE 2 DIABETES MELLITUS
     Route: 048
     Dates: start: 20160119
  7. METGLUCO [Concomitant]
     Active Substance: METFORMIN HYDROCHLORIDE
     Indication: TYPE 2 DIABETES MELLITUS
     Dosage: STARTED BEFORE ADMINISTRATION OF CANAGLIFLOZIN
     Route: 048
     Dates: end: 20170109
  8. COMPLAVIN [Concomitant]
     Active Substance: ASPIRIN\CLOPIDOGREL BISULFATE
     Dosage: STARTED  BEFORE ADMINISTRATION OF CANAGLIFLOZIN
     Route: 048
  9. PITAVASTATIN. [Concomitant]
     Active Substance: PITAVASTATIN CALCIUM
     Dosage: STARTED BEFORE ADMINISTRATION OF CANAGLIFLOZIN
     Route: 048

REACTIONS (2)
  - Vulvovaginal candidiasis [Recovering/Resolving]
  - Angina pectoris [Recovering/Resolving]

NARRATIVE: CASE EVENT DATE: 2017
